FAERS Safety Report 9576700 (Version 1)
Quarter: 2013Q4

REPORT INFORMATION
  Report Type: Spontaneous
  Country: US (occurrence: US)
  Receive Date: 20131001
  Receipt Date: 20131001
  Transmission Date: 20140711
  Serious: No
  Sender: FDA-Public Use
  Company Number: US-AMGEN-USASP2013004314

PATIENT
  Age: 67 Year
  Sex: Female

DRUGS (10)
  1. ENBREL [Suspect]
     Indication: PRODUCT USED FOR UNKNOWN INDICATION
     Dosage: 50 MG, 2 TIMES/WK
     Route: 058
  2. AMLODIPINE [Concomitant]
     Dosage: 5 MG, UNK
  3. SYNTHROID [Concomitant]
     Dosage: 100 MUG, UNK
  4. POTASSIUM CHLORIDE [Concomitant]
     Dosage: 20 MEQ, UNK
  5. CITALOPRAM [Concomitant]
     Dosage: 10 MG, UNK
  6. PRAVASTATIN [Concomitant]
     Dosage: 40 MG, UNK
  7. PRILOSEC                           /00661201/ [Concomitant]
     Dosage: 10 MG, UNK
  8. LOSARTAN POTASSIUM [Concomitant]
     Dosage: 100 MG, UNK
  9. ZETIA [Concomitant]
     Dosage: 10 MG, UNK
  10. METHOTREXATE [Concomitant]
     Dosage: 20 MG, UNK

REACTIONS (4)
  - Cough [Unknown]
  - Pyrexia [Unknown]
  - Pain [Unknown]
  - Diarrhoea [Unknown]
